FAERS Safety Report 13162122 (Version 1)
Quarter: 2017Q1

REPORT INFORMATION
  Report Type: Spontaneous
  Country: US (occurrence: US)
  Receive Date: 20170126
  Receipt Date: 20170126
  Transmission Date: 20170428
  Serious: Yes (Death)
  Sender: FDA-Public Use
  Company Number: None

PATIENT
  Age: 87 Year
  Sex: Male
  Weight: 99.88 kg

DRUGS (1)
  1. CAPECITABINE 500MG UNKNOWN [Suspect]
     Active Substance: CAPECITABINE
     Indication: RECTOSIGMOID CANCER
     Dosage: 4 TABLETS BID X 14 DAYS BY MOUTH
     Route: 048
     Dates: start: 20160816

REACTIONS (1)
  - Death [None]

NARRATIVE: CASE EVENT DATE: 20161021
